FAERS Safety Report 5445843-0 (Version None)
Quarter: 2007Q3

REPORT INFORMATION
  Report Type: 
  Country: None (occurrence: None)
  Receive Date: 20070904
  Receipt Date: 20070821
  Transmission Date: 20080115
  Serious: Yes (Other)
  Sender: FDA-Public Use
  Company Number: GXKR2007GB07191

PATIENT
  Age: 19 Year
  Sex: Female

DRUGS (1)
  1. SULFASALAZINE [Suspect]

REACTIONS (6)
  - DRUG ERUPTION [None]
  - DRUG RASH WITH EOSINOPHILIA AND SYSTEMIC SYMPTOMS [None]
  - DRY SKIN [None]
  - LYMPHADENOPATHY [None]
  - SWELLING FACE [None]
  - TRANSAMINASES ABNORMAL [None]
